FAERS Safety Report 17848885 (Version 1)
Quarter: 2020Q2

REPORT INFORMATION
  Report Type: Report from Study
  Country: None (occurrence: US)
  Receive Date: 20200602
  Receipt Date: 20200602
  Transmission Date: 20200714
  Serious: Yes (Hospitalization)
  Sender: FDA-Public Use
  Company Number: US-BIOVITRUM-2019US2999

PATIENT
  Sex: Male

DRUGS (1)
  1. KINERET [Suspect]
     Active Substance: ANAKINRA
     Indication: EPSTEIN-BARR VIRUS INFECTION
     Route: 058
     Dates: start: 20190627

REACTIONS (2)
  - Infection [Unknown]
  - Off label use [Unknown]
